FAERS Safety Report 8421318 (Version 6)
Quarter: 2014Q1

REPORT INFORMATION
  Report Type: Spontaneous
  Country: US (occurrence: US)
  Receive Date: 20120222
  Receipt Date: 20140225
  Transmission Date: 20141002
  Serious: Yes (Hospitalization, Congenital Anomaly, Other)
  Sender: FDA-Public Use
  Company Number: US-PFIZER INC-2012003375

PATIENT
  Sex: Female

DRUGS (14)
  1. ZOLOFT [Suspect]
     Indication: ANXIETY DISORDER
     Dosage: 50 MG, 1X/DAY
     Route: 064
     Dates: start: 20010601
  2. ZOLOFT [Suspect]
     Indication: DEPRESSION
     Dosage: HALF PILL PER DAY
     Route: 064
     Dates: start: 20011030
  3. ZOLOFT [Suspect]
     Indication: ANXIETY
     Dosage: UNK
     Route: 064
     Dates: start: 20020301
  4. ZOLOFT [Suspect]
     Dosage: 100 MG, UNK
     Route: 064
     Dates: start: 20020528
  5. ZOLOFT [Suspect]
     Dosage: ^50 UNKNOWN UNITS^
     Route: 064
     Dates: start: 20020918
  6. ZOLOFT [Suspect]
     Dosage: 50 MG, UNK
     Route: 064
     Dates: start: 20021001
  7. ZOLOFT [Suspect]
     Dosage: 50 MG, UNK
     Route: 064
     Dates: start: 20030108
  8. PRENATAL VITAMINS [Concomitant]
     Dosage: UNK
     Route: 064
     Dates: start: 20020820
  9. PAXIL [Concomitant]
     Indication: DEPRESSION
     Dosage: 20 MG, UNK
     Route: 064
     Dates: start: 2002, end: 2003
  10. PAXIL [Concomitant]
     Indication: ANXIETY
  11. SUDAFED [Concomitant]
     Indication: NASOPHARYNGITIS
     Dosage: UNK, AS NEEDED
     Route: 064
  12. BENADRYL [Concomitant]
     Indication: MULTIPLE ALLERGIES
     Dosage: UNK, AS NEEDED
     Route: 064
  13. MOTRIN [Concomitant]
     Indication: HEADACHE
     Dosage: UNK, AS NEEDED
     Route: 064
  14. DELTASONE [Concomitant]
     Dosage: UNK
     Route: 064

REACTIONS (14)
  - Maternal exposure timing unspecified [Unknown]
  - Pulmonary artery atresia [Unknown]
  - Ventricular septal defect [Unknown]
  - Choledochal cyst [Unknown]
  - Tricuspid valve incompetence [Unknown]
  - Pulmonary valve stenosis [Unknown]
  - Cardiomegaly [Unknown]
  - Plagiocephaly [Unknown]
  - Neonatal respiratory distress syndrome [Unknown]
  - Cyanosis neonatal [Unknown]
  - Pneumothorax [Unknown]
  - Cardiac arrest [Unknown]
  - Speech disorder [Unknown]
  - Developmental delay [Unknown]
